FAERS Safety Report 17580591 (Version 3)
Quarter: 2020Q2

REPORT INFORMATION
  Report Type: Spontaneous
  Country: US (occurrence: US)
  Receive Date: 20200325
  Receipt Date: 20200402
  Transmission Date: 20200713
  Serious: Yes (Other)
  Sender: FDA-Public Use
  Company Number: US-PFIZER INC-2020122003

PATIENT
  Age: 79 Year
  Sex: Female

DRUGS (1)
  1. LIDOCAINE HCL [Suspect]
     Active Substance: LIDOCAINE HYDROCHLORIDE
     Indication: LOCAL ANAESTHESIA
     Dosage: 60 ML, UNK (TO THE LEFT SUBCLAVIAN AREA)
     Route: 058

REACTIONS (3)
  - Unresponsive to stimuli [Recovered/Resolved]
  - Local anaesthetic systemic toxicity [Recovered/Resolved]
  - Blood pressure systolic decreased [Recovered/Resolved]
